FAERS Safety Report 15313163 (Version 1)
Quarter: 2018Q3

REPORT INFORMATION
  Report Type: Other
  Country: JP (occurrence: JP)
  Receive Date: 20180823
  Receipt Date: 20180823
  Transmission Date: 20181010
  Serious: Yes (Life-Threatening)
  Sender: FDA-Public Use
  Company Number: JP-B. BRAUN MEDICAL INC.-2054168

PATIENT
  Age: 62 Year
  Sex: Male
  Weight: 64 kg

DRUGS (1)
  1. 20% MANNITOL INJECTION USP 0264?7578?10 0264?7578?20 [Suspect]
     Active Substance: MANNITOL
     Route: 042

REACTIONS (2)
  - Ventricular tachycardia [None]
  - Hyperkalaemia [None]
